FAERS Safety Report 21939972 (Version 1)
Quarter: 2023Q1

REPORT INFORMATION
  Report Type: Spontaneous
  Country: JP (occurrence: JP)
  Receive Date: 20230201
  Receipt Date: 20230201
  Transmission Date: 20230417
  Serious: No
  Sender: FDA-Public Use
  Company Number: JP-TAKEDA-2022TJP015834

PATIENT
  Age: 62 Year
  Sex: Male

DRUGS (1)
  1. CABOMETYX [Suspect]
     Active Substance: CABOZANTINIB S-MALATE
     Indication: Renal cancer
     Dosage: 40 MG, QD
     Route: 048
     Dates: start: 20211025

REACTIONS (4)
  - Troponin increased [Recovering/Resolving]
  - Brain natriuretic peptide increased [Recovering/Resolving]
  - Hepatic function abnormal [Recovering/Resolving]
  - Hypertension [Recovering/Resolving]
